FAERS Safety Report 5130124-5 (Version None)
Quarter: 2006Q4

REPORT INFORMATION
  Report Type: 
  Country: None (occurrence: None)
  Receive Date: 20061013
  Receipt Date: 20060928
  Transmission Date: 20070319
  Serious: Yes (Other)
  Sender: FDA-Public Use
  Company Number: FR200609006983

PATIENT
  Age: 82 Year
  Sex: Female

DRUGS (2)
  1. FORTEO [Suspect]
     Indication: OSTEOPOROSIS
     Dosage: 20 UG, DAILY (1/D), SUBCUTANEOUS
     Route: 058
     Dates: start: 20050525
  2. FORTEO [Concomitant]

REACTIONS (4)
  - BACK PAIN [None]
  - PATHOLOGICAL FRACTURE [None]
  - SCIATICA [None]
  - SPINAL FRACTURE [None]
